FAERS Safety Report 9690475 (Version 2)
Quarter: 2013Q4

REPORT INFORMATION
  Report Type: Spontaneous
  Country: US (occurrence: US)
  Receive Date: 20131115
  Receipt Date: 20131115
  Transmission Date: 20140711
  Serious: Yes (Other)
  Sender: FDA-Public Use
  Company Number: US-SA-2013SA112388

PATIENT
  Age: 89 Year
  Sex: Female

DRUGS (1)
  1. PLAVIX [Suspect]
     Indication: CEREBROVASCULAR ACCIDENT
     Route: 065
     Dates: end: 201303

REACTIONS (4)
  - Dementia [Unknown]
  - Haemorrhagic stroke [Unknown]
  - Bedridden [Unknown]
  - Gastric haemorrhage [Unknown]
